FAERS Safety Report 10069144 (Version 1)
Quarter: 2014Q2

REPORT INFORMATION
  Report Type: Spontaneous
  Country: GB (occurrence: GB)
  Receive Date: 20140409
  Receipt Date: 20140409
  Transmission Date: 20141212
  Serious: Yes (Hospitalization, Disabling)
  Sender: FDA-Public Use
  Company Number: GB-MYLANLABS-2014S1007515

PATIENT
  Age: 22 Year
  Sex: Male

DRUGS (2)
  1. FLUPENTIXOL [Suspect]
     Route: 030
  2. CLOZAPINE [Suspect]
     Dosage: 300MG DAILY
     Route: 065

REACTIONS (3)
  - Neuroleptic malignant syndrome [Recovering/Resolving]
  - Compartment syndrome [Recovering/Resolving]
  - Brachial plexus injury [Recovering/Resolving]
